FAERS Safety Report 6069298-0 (Version None)
Quarter: 2009Q1

REPORT INFORMATION
  Report Type: 
  Country: None (occurrence: None)
  Receive Date: 20090206
  Receipt Date: 20090126
  Transmission Date: 20090719
  Serious: Yes (Hospitalization, Other)
  Sender: FDA-Public Use
  Company Number: SE-PFIZER INC-2009160466

PATIENT

DRUGS (3)
  1. LYRICA [Suspect]
     Indication: ANXIETY
     Dosage: 75 MG, UNK
     Route: 048
     Dates: start: 20071101, end: 20081101
  2. YASMIN [Concomitant]
     Dosage: UNK
  3. FONTEX [Concomitant]
     Dosage: 20 MG, UNK

REACTIONS (3)
  - DEPENDENCE [None]
  - EUPHORIC MOOD [None]
  - WITHDRAWAL SYNDROME [None]
